FAERS Safety Report 18936942 (Version 1)
Quarter: 2021Q1

REPORT INFORMATION
  Report Type: Spontaneous
  Country: TR (occurrence: TR)
  Receive Date: 20210225
  Receipt Date: 20210225
  Transmission Date: 20210420
  Serious: Yes (Hospitalization, Other)
  Sender: FDA-Public Use
  Company Number: TR-LUPIN PHARMACEUTICALS INC.-2021-02271

PATIENT
  Age: 12 Year
  Sex: Female

DRUGS (2)
  1. METHYLPREDNISOLONE. [Suspect]
     Active Substance: METHYLPREDNISOLONE
     Indication: IMMUNE THROMBOCYTOPENIA
     Dosage: UNK, TOTAL OF 5000MG
     Route: 048
  2. METHYLPREDNISOLONE. [Suspect]
     Active Substance: METHYLPREDNISOLONE
     Dosage: 15 MILLIGRAM/SQ. METER, QD
     Route: 048

REACTIONS (5)
  - Hypertriglyceridaemia [Unknown]
  - Adrenal insufficiency [Recovering/Resolving]
  - Hyperglycaemia [Unknown]
  - Cataract [Unknown]
  - Cushing^s syndrome [Recovering/Resolving]
